FAERS Safety Report 4845239-6 (Version None)
Quarter: 2005Q4

REPORT INFORMATION
  Report Type: 
  Country: None (occurrence: None)
  Receive Date: 20051125
  Receipt Date: 20051115
  Transmission Date: 20060501
  Serious: Yes (Death, Other)
  Sender: FDA-Public Use
  Company Number: HQWYE645918NOV05

PATIENT
  Sex: Female

DRUGS (4)
  1. PREMPRO [Suspect]
  2. CENESTIN [Suspect]
  3. NORETHINDRONE ACETATE [Suspect]
  4. PROMETRIUM [Suspect]

REACTIONS (4)
  - ACUTE MYOCARDIAL INFARCTION [None]
  - CARDIAC ARREST [None]
  - CORONARY ARTERY THROMBOSIS [None]
  - VENTRICULAR FIBRILLATION [None]
